FAERS Safety Report 12648216 (Version 1)
Quarter: 2016Q3

REPORT INFORMATION
  Report Type: Spontaneous
  Country: US (occurrence: None)
  Receive Date: 20160811
  Receipt Date: 20160811
  Transmission Date: 20161109
  Serious: Yes (Hospitalization)
  Sender: FDA-Public Use
  Company Number: None

PATIENT
  Age: 34 Year
  Sex: Female
  Weight: 62.6 kg

DRUGS (4)
  1. NELFINAVIR [Suspect]
     Active Substance: NELFINAVIR
     Indication: SYSTEMIC LUPUS ERYTHEMATOSUS
     Route: 048
     Dates: start: 20160616, end: 20160630
  2. PLAQUENIL [Concomitant]
     Active Substance: HYDROXYCHLOROQUINE SULFATE
  3. PREDNISONE. [Concomitant]
     Active Substance: PREDNISONE
  4. IMURAN [Concomitant]
     Active Substance: AZATHIOPRINE

REACTIONS (4)
  - Hypotension [None]
  - Subcutaneous abscess [None]
  - Systemic lupus erythematosus [None]
  - Heavy exposure to ultraviolet light [None]

NARRATIVE: CASE EVENT DATE: 20160630
